FAERS Safety Report 13684221 (Version 1)
Quarter: 2017Q2

REPORT INFORMATION
  Report Type: Spontaneous
  Country: RU (occurrence: RU)
  Receive Date: 20170623
  Receipt Date: 20170623
  Transmission Date: 20170830
  Serious: Yes (Hospitalization)
  Sender: FDA-Public Use
  Company Number: RU-ABBVIE-17P-251-2015819-00

PATIENT
  Sex: Female

DRUGS (1)
  1. KLACID SR [Suspect]
     Active Substance: CLARITHROMYCIN
     Indication: PRODUCT USED FOR UNKNOWN INDICATION
     Route: 065

REACTIONS (6)
  - Alanine aminotransferase abnormal [Unknown]
  - Pancreatitis [Unknown]
  - Abdominal pain [Unknown]
  - Nausea [Unknown]
  - Aspartate aminotransferase abnormal [Unknown]
  - Vomiting [Unknown]
